FAERS Safety Report 23387519 (Version 1)
Quarter: 2024Q1

REPORT INFORMATION
  Report Type: Spontaneous
  Country: FR (occurrence: FR)
  Receive Date: 20240110
  Receipt Date: 20240110
  Transmission Date: 20240410
  Serious: Yes (Other)
  Sender: FDA-Public Use
  Company Number: None

PATIENT
  Age: 24 Year
  Sex: Male
  Weight: 50 kg

DRUGS (9)
  1. ELEXACAFTOR\IVACAFTOR\TEZACAFTOR [Suspect]
     Active Substance: ELEXACAFTOR\IVACAFTOR\TEZACAFTOR
     Indication: Cystic fibrosis
     Dosage: TWO (75MG IVACAFTOR/ 50MG TEZACAFTOR/ 100MG ELEXACAFTOR) EVERY DAY
     Route: 048
     Dates: start: 20220617, end: 20230206
  2. KALYDECO [Suspect]
     Active Substance: IVACAFTOR
     Indication: Cystic fibrosis
     Dosage: ONE EVERY DAY
     Route: 048
     Dates: start: 20220617, end: 20230206
  3. RETINOL [Concomitant]
     Active Substance: RETINOL
  4. FOLIC ACID [Concomitant]
     Active Substance: FOLIC ACID
  5. PANCRELIPASE [Concomitant]
     Active Substance: PANCRELIPASE
  6. PHYTONADIONE [Concomitant]
     Active Substance: PHYTONADIONE
  7. TOCOPHEROL [Concomitant]
     Active Substance: TOCOPHEROL
  8. CHOLECALCIFEROL [Concomitant]
     Active Substance: CHOLECALCIFEROL
  9. BACTRIM [Concomitant]
     Active Substance: SULFAMETHOXAZOLE\TRIMETHOPRIM

REACTIONS (1)
  - Arthralgia [Recovered/Resolved]

NARRATIVE: CASE EVENT DATE: 20220701
